FAERS Safety Report 6635743-2 (Version None)
Quarter: 2010Q1

REPORT INFORMATION
  Report Type: 
  Country: None (occurrence: None)
  Receive Date: 20100309
  Receipt Date: 20100223
  Transmission Date: 20100710
  Serious: Yes (Death, Hospitalization)
  Sender: FDA-Public Use
  Company Number: CLOF-1000751

PATIENT
  Age: 70 Year
  Sex: Female
  Weight: 60 kg

DRUGS (7)
  1. EVOLTRA (CLOFARABINE) SOLUTION FOR INFUSION, UNK [Suspect]
     Indication: ACUTE MYELOID LEUKAEMIA
     Dosage: 30 MG/M2, QDX5, INTRAVENOUS
     Route: 042
     Dates: start: 20091005, end: 20091009
  2. ZIENAM (CILASTATIN SODIUM, IMIPENEM) [Concomitant]
  3. METRONIDAZOLE [Concomitant]
  4. VANCOMYCIN [Concomitant]
  5. CIPROBAY (CIPROFLOXACIN LACTATE) [Concomitant]
  6. FUROSEMIDE (FUROSEMIDE SODIUM) [Concomitant]
  7. TAZOBAC (TAZOBACTAM SODIUM) [Concomitant]

REACTIONS (9)
  - BONE MARROW FAILURE [None]
  - DEHYDRATION [None]
  - DIARRHOEA [None]
  - DRUG INEFFECTIVE [None]
  - INFECTION [None]
  - NEUTROPENIA [None]
  - RENAL FAILURE ACUTE [None]
  - RENAL TUBULAR DISORDER [None]
  - THROMBOCYTOPENIA [None]
